FAERS Safety Report 5869431-7 (Version None)
Quarter: 2008Q3

REPORT INFORMATION
  Report Type: 
  Country: None (occurrence: None)
  Receive Date: 20080903
  Receipt Date: 20080819
  Transmission Date: 20090109
  Serious: Yes (Hospitalization, Other)
  Sender: FDA-Public Use
  Company Number: FR-BOEHRINGER INGELHEIM GMBH, GERMANY-2008-BP-10226YA

PATIENT
  Age: 60 Year
  Sex: Male
  Weight: 79 kg

DRUGS (2)
  1. OMIX L.P. [Suspect]
     Indication: BENIGN PROSTATIC HYPERPLASIA
     Route: 048
     Dates: start: 20061114
  2. SOLUPRED [Concomitant]

REACTIONS (1)
  - ATRIAL FIBRILLATION [None]
